FAERS Safety Report 15062044 (Version 12)
Quarter: 2020Q1

REPORT INFORMATION
  Report Type: Report from Study
  Country: CA (occurrence: CA)
  Receive Date: 20180625
  Receipt Date: 20200305
  Transmission Date: 20200409
  Serious: Yes (Disabling, Other)
  Sender: FDA-Public Use
  Company Number: CA-ACTELION-A-NJ2018-174077

PATIENT
  Age: 41 Year
  Sex: Female

DRUGS (8)
  1. UPTRAVI [Suspect]
     Active Substance: SELEXIPAG
     Dosage: 600 MCG, UNK
     Route: 048
  2. OPSUMIT [Suspect]
     Active Substance: MACITENTAN
     Indication: PULMONARY ARTERIAL HYPERTENSION
     Dosage: 10 MG, UNK
     Route: 048
  3. ADCIRCA [Concomitant]
     Active Substance: TADALAFIL
  4. AZATHIOPRINE. [Concomitant]
     Active Substance: AZATHIOPRINE
  5. UPTRAVI [Suspect]
     Active Substance: SELEXIPAG
     Indication: PULMONARY ARTERIAL HYPERTENSION
     Dosage: 800 MCG, BID
     Route: 048
     Dates: start: 20160611
  6. UPTRAVI [Suspect]
     Active Substance: SELEXIPAG
     Dosage: 200 MCG, UNK
     Route: 048
     Dates: start: 20180611
  7. PREDNISONE. [Concomitant]
     Active Substance: PREDNISONE
  8. HYDROXYCHLOROQUINE [Concomitant]
     Active Substance: HYDROXYCHLOROQUINE

REACTIONS (15)
  - Diarrhoea [Not Recovered/Not Resolved]
  - Pain [Recovering/Resolving]
  - Pain in jaw [Not Recovered/Not Resolved]
  - Adverse event [Not Recovered/Not Resolved]
  - Physical disability [Not Recovered/Not Resolved]
  - Arthralgia [Not Recovered/Not Resolved]
  - Insomnia [Not Recovered/Not Resolved]
  - Back pain [Not Recovered/Not Resolved]
  - Myalgia [Not Recovered/Not Resolved]
  - Peripheral swelling [Recovering/Resolving]
  - Swelling face [Recovering/Resolving]
  - Dyspnoea exertional [Unknown]
  - Memory impairment [Unknown]
  - Fatigue [Unknown]
  - Pain in extremity [Not Recovered/Not Resolved]

NARRATIVE: CASE EVENT DATE: 20180612
